FAERS Safety Report 8031652-5 (Version None)
Quarter: 2012Q1

REPORT INFORMATION
  Report Type: 
  Country: None (occurrence: None)
  Receive Date: 20120109
  Receipt Date: 20120105
  Transmission Date: 20120608
  Serious: Yes (Death)
  Sender: FDA-Public Use
  Company Number: US-CELGENEUS-163-20785-11102066

PATIENT
  Sex: Female

DRUGS (6)
  1. COMBIVENT [Concomitant]
     Route: 065
  2. LEVOTHYROXINE SODIUM [Concomitant]
     Route: 065
  3. AMBIEN [Concomitant]
     Route: 065
  4. EFFEXOR [Concomitant]
     Route: 065
  5. SPIRIVA [Concomitant]
     Route: 065
  6. THALOMID [Suspect]
     Indication: MULTIPLE MYELOMA
     Dosage: 200 MILLIGRAM
     Route: 048
     Dates: start: 20110531, end: 20110927

REACTIONS (1)
  - SUDDEN CARDIAC DEATH [None]
